FAERS Safety Report 15164696 (Version 1)
Quarter: 2018Q3

REPORT INFORMATION
  Report Type: Spontaneous
  Country: US (occurrence: US)
  Receive Date: 20180719
  Receipt Date: 20180719
  Transmission Date: 20181010
  Serious: Yes (Hospitalization, Other)
  Sender: FDA-Public Use
  Company Number: US-MYLANLABS-2018M1052156

PATIENT
  Age: 48 Year
  Sex: Male

DRUGS (2)
  1. TESTOSTERONE. [Suspect]
     Active Substance: TESTOSTERONE
     Indication: PRODUCT USED FOR UNKNOWN INDICATION
     Dosage: 7 MONTHS EACH YEAR FROM 4 YEARS IN A CYCLIC PATTERN
     Route: 065
  2. AMFETAMINE/DEXAMFETAMINE [Interacting]
     Active Substance: AMPHETAMINE SULFATE\DEXTROAMPHETAMINE
     Dosage: 7 MONTHS EACH YEAR FROM 4 YEARS IN A CYCLIC PATTERN
     Route: 065

REACTIONS (5)
  - Performance enhancing product use [Recovering/Resolving]
  - Food interaction [Recovering/Resolving]
  - Psychotic disorder [Recovered/Resolved]
  - Blood testosterone increased [Unknown]
  - Cortisol increased [Unknown]
